FAERS Safety Report 23126506 (Version 2)
Quarter: 2023Q4

REPORT INFORMATION
  Report Type: Report from Study
  Country: BR (occurrence: BR)
  Receive Date: 20231030
  Receipt Date: 20231130
  Transmission Date: 20240110
  Serious: Yes (Death, Life-Threatening, Hospitalization, Other)
  Sender: FDA-Public Use
  Company Number: BR-Merck Healthcare KGaA-2023483233

PATIENT
  Age: 76 Year
  Sex: Male

DRUGS (1)
  1. CETUXIMAB [Suspect]
     Active Substance: CETUXIMAB
     Indication: Salivary gland cancer
     Dosage: UNK, WEEKLY (1/W)
     Route: 042
     Dates: start: 20221001

REACTIONS (9)
  - Pneumonia [Fatal]
  - Septic shock [Fatal]
  - Retroperitoneal haemorrhage [Recovering/Resolving]
  - Anaemia [Recovering/Resolving]
  - Renal disorder [Recovering/Resolving]
  - Contusion [Recovering/Resolving]
  - Sensitive skin [Recovering/Resolving]
  - Blood magnesium decreased [Recovering/Resolving]
  - Off label use [Unknown]
